FAERS Safety Report 18335567 (Version 1)
Quarter: 2020Q4

REPORT INFORMATION
  Report Type: Spontaneous
  Country: US (occurrence: US)
  Receive Date: 20201001
  Receipt Date: 20201001
  Transmission Date: 20210113
  Serious: No
  Sender: FDA-Public Use
  Company Number: US-ABBVIE-20K-163-3454428-00

PATIENT

DRUGS (1)
  1. NORVIR [Suspect]
     Active Substance: RITONAVIR
     Indication: HIV INFECTION
     Route: 048

REACTIONS (5)
  - Paraesthesia [Unknown]
  - Drug hypersensitivity [Unknown]
  - Burning sensation [Unknown]
  - Immune system disorder [Unknown]
  - Pruritus allergic [Unknown]
